FAERS Safety Report 24001808 (Version 1)
Quarter: 2024Q2

REPORT INFORMATION
  Report Type: Spontaneous
  Country: US (occurrence: US)
  Receive Date: 20240622
  Receipt Date: 20240622
  Transmission Date: 20240716
  Serious: No
  Sender: FDA-Public Use
  Company Number: US-CADILA HEALTHCARE LIMITED-US-ZYDUS-104893

PATIENT

DRUGS (1)
  1. LENALIDOMIDE [Suspect]
     Active Substance: LENALIDOMIDE
     Indication: Plasma cell myeloma
     Dosage: 25 MILLIGRAM, QD FOR 21 DAYS
     Route: 048
     Dates: start: 20230911

REACTIONS (4)
  - Product substitution issue [Unknown]
  - Malaise [Unknown]
  - Dizziness [Unknown]
  - Brain fog [Unknown]
